FAERS Safety Report 4912807-2 (Version None)
Quarter: 2006Q1

REPORT INFORMATION
  Report Type: 
  Country: None (occurrence: None)
  Receive Date: 20060215
  Receipt Date: 20060206
  Transmission Date: 20060701
  Serious: Yes (Other)
  Sender: FDA-Public Use
  Company Number: JP-ROCHE-435795

PATIENT
  Age: 77 Year
  Sex: Male

DRUGS (5)
  1. TAMIFLU [Suspect]
     Indication: INFLUENZA
     Route: 048
     Dates: start: 20060204, end: 20060204
  2. ACETAMINOPHEN [Concomitant]
     Dosage: DOSE FORM REPORTED AS ORAL FORMULATION
     Route: 048
     Dates: start: 20060204
  3. ARTIST [Concomitant]
     Route: 048
     Dates: start: 20060206
  4. WARFARIN [Concomitant]
     Route: 048
     Dates: start: 20060206
  5. ZYLORIC [Concomitant]
     Route: 048
     Dates: start: 20060206

REACTIONS (3)
  - DISSEMINATED INTRAVASCULAR COAGULATION [None]
  - RENAL IMPAIRMENT [None]
  - RHABDOMYOLYSIS [None]
